FAERS Safety Report 7379095-1 (Version None)
Quarter: 2011Q1

REPORT INFORMATION
  Report Type: 
  Country: None (occurrence: None)
  Receive Date: 20110328
  Receipt Date: 20110322
  Transmission Date: 20110831
  Serious: Yes (Hospitalization, Other)
  Sender: FDA-Public Use
  Company Number: FR-PFIZER INC-2011065237

PATIENT
  Sex: Male
  Weight: 69.9 kg

DRUGS (10)
  1. TAHOR [Suspect]
     Indication: HYPERCHOLESTEROLAEMIA
     Dosage: 40 MG, 1X/DAY
     Route: 048
     Dates: end: 20110210
  2. TRAMADOL HYDROCHLORIDE [Suspect]
     Dosage: 150 MG, 2X/DAY
     Route: 048
     Dates: end: 20110210
  3. KARDEGIC [Concomitant]
     Dosage: 75 MG, 1X/DAY
  4. ECONAZOLE [Concomitant]
     Dosage: 2 CUTANEOUS APPLICATION PER DAY
     Route: 061
  5. TAMSULOSIN HYDROCHLORIDE [Suspect]
     Indication: URINARY RETENTION
     Dosage: 0.4 MG, 1X/DAY
     Route: 048
     Dates: end: 20110210
  6. CETORNAN [Suspect]
     Indication: ENTERAL NUTRITION
     Dosage: 5 G, 2X/DAY
     Route: 048
     Dates: end: 20110210
  7. NEXIUM [Suspect]
     Indication: PROPHYLAXIS AGAINST GASTROINTESTINAL ULCER
     Dosage: 40 MG, 1X/DAY
     Route: 048
     Dates: end: 20110210
  8. PARACETAMOL [Suspect]
     Dosage: 1 G, 4X/DAY
     Route: 048
     Dates: end: 20110210
  9. ATENOLOL [Concomitant]
     Dosage: 50 MG, 1X/DAY
  10. BACTRIM [Concomitant]

REACTIONS (3)
  - CYTOLYTIC HEPATITIS [None]
  - HEPATITIS [None]
  - CHOLESTASIS [None]
